FAERS Safety Report 26181668 (Version 1)
Quarter: 2025Q4

REPORT INFORMATION
  Report Type: Spontaneous
  Country: US (occurrence: US)
  Receive Date: 20251221
  Receipt Date: 20251221
  Transmission Date: 20260117
  Serious: No
  Sender: GLAUKOS
  Company Number: US-GLK-000707

PATIENT

DRUGS (1)
  1. IDOSE TR [Suspect]
     Active Substance: TRAVOPROST
     Indication: Product used for unknown indication

REACTIONS (2)
  - Intraocular pressure increased [Unknown]
  - Medical device removal [Unknown]

NARRATIVE: CASE EVENT DATE: 20251211
